FAERS Safety Report 26128427 (Version 1)
Quarter: 2025Q4

REPORT INFORMATION
  Report Type: Spontaneous
  Country: CN (occurrence: CN)
  Receive Date: 20251207
  Receipt Date: 20251207
  Transmission Date: 20260118
  Serious: Yes (Other)
  Sender: BEIGENE
  Company Number: CN-BEONEMEDICINES-BGN-2025-021445

PATIENT
  Age: 62 Year
  Sex: Male

DRUGS (6)
  1. TISLELIZUMAB [Suspect]
     Active Substance: TISLELIZUMAB
     Indication: Gastric cancer
     Dates: start: 20251027, end: 20251027
  2. TISLELIZUMAB [Suspect]
     Active Substance: TISLELIZUMAB
     Route: 041
     Dates: start: 20251027, end: 20251027
  3. TISLELIZUMAB [Suspect]
     Active Substance: TISLELIZUMAB
     Route: 041
     Dates: start: 20251027, end: 20251027
  4. TISLELIZUMAB [Suspect]
     Active Substance: TISLELIZUMAB
     Dates: start: 20251027, end: 20251027
  5. OXALIPLATIN [Suspect]
     Active Substance: OXALIPLATIN
     Indication: Gastric cancer
     Route: 041
     Dates: start: 20251027, end: 20251027
  6. OXALIPLATIN [Suspect]
     Active Substance: OXALIPLATIN
     Dates: start: 20251027, end: 20251027

REACTIONS (1)
  - Myelosuppression [Unknown]

NARRATIVE: CASE EVENT DATE: 20251117
